FAERS Safety Report 7101783-2 (Version None)
Quarter: 2010Q4

REPORT INFORMATION
  Report Type: 
  Country: None (occurrence: None)
  Receive Date: 20101115
  Receipt Date: 20101110
  Transmission Date: 20110411
  Serious: Yes (Life-Threatening, Hospitalization)
  Sender: FDA-Public Use
  Company Number: JP-NOVOPROD-317813

PATIENT
  Age: 63 Year
  Sex: Female
  Weight: 68 kg

DRUGS (7)
  1. VICTOZA [Suspect]
     Indication: DIABETES MELLITUS
     Dosage: 0.3 MG, QD
     Route: 058
     Dates: start: 20101022
  2. VICTOZA [Suspect]
     Indication: OVERWEIGHT
  3. AMARYL [Concomitant]
     Indication: DIABETES MELLITUS
     Dosage: 3 MG, QD
     Route: 048
     Dates: start: 20101012
  4. RENIVACE [Concomitant]
     Dosage: 5 MG, QD
     Route: 048
     Dates: start: 20080804
  5. LIPITOR [Concomitant]
     Dosage: 10 MG, QD
     Route: 048
     Dates: start: 20100804
  6. MICARDIS [Concomitant]
     Dosage: 40 MG, QD
     Route: 048
     Dates: start: 20091208
  7. CORINAEL [Concomitant]
     Dosage: 40 MG, QD
     Route: 048
     Dates: start: 20081007

REACTIONS (1)
  - DIABETIC KETOACIDOSIS [None]
